FAERS Safety Report 9880590 (Version 2)
Quarter: 2014Q1

REPORT INFORMATION
  Report Type: Spontaneous
  Country: US (occurrence: US)
  Receive Date: 20140207
  Receipt Date: 20140226
  Transmission Date: 20141002
  Serious: Yes (Other)
  Sender: FDA-Public Use
  Company Number: US-ROCHE-1345910

PATIENT
  Sex: Female
  Weight: 39.5 kg

DRUGS (3)
  1. XOLAIR [Suspect]
     Indication: ASTHMA
     Route: 058
     Dates: start: 20140124, end: 20140131
  2. PREDNISONE [Concomitant]
  3. PULMICORT [Concomitant]

REACTIONS (2)
  - Swelling face [Recovered/Resolved]
  - Local swelling [Recovered/Resolved]
